FAERS Safety Report 20578544 (Version 17)
Quarter: 2023Q4

REPORT INFORMATION
  Report Type: Report from Study
  Country: CA (occurrence: CA)
  Receive Date: 20220310
  Receipt Date: 20231218
  Transmission Date: 20240109
  Serious: Yes (Hospitalization, Other)
  Sender: FDA-Public Use
  Company Number: CA-OTSUKA-2022_004773

PATIENT
  Age: 89 Year
  Sex: Female

DRUGS (1)
  1. CEDAZURIDINE\DECITABINE [Suspect]
     Active Substance: CEDAZURIDINE\DECITABINE
     Indication: Myelodysplastic syndrome
     Dosage: UNK (THREE PILLS AS A REDUCED DOSE PER CYCLE), QD (3 DAYS IN A ROW)
     Route: 065
     Dates: start: 20220204

REACTIONS (28)
  - Transfusion [Not Recovered/Not Resolved]
  - Blood product transfusion dependent [Unknown]
  - Sciatic nerve injury [Recovering/Resolving]
  - Limb injury [Recovering/Resolving]
  - Fall [Unknown]
  - Haemorrhage [Recovering/Resolving]
  - Platelet count decreased [Recovered/Resolved]
  - Haemoglobin decreased [Recovering/Resolving]
  - White blood cell count decreased [Recovering/Resolving]
  - Macular degeneration [Unknown]
  - Hiccups [Recovered/Resolved]
  - Sinus disorder [Unknown]
  - Eastern Cooperative Oncology Group performance status worsened [Unknown]
  - Full blood count abnormal [Unknown]
  - Dry mouth [Unknown]
  - Arthritis [Unknown]
  - General physical health deterioration [Unknown]
  - Pain in extremity [Unknown]
  - Dyspnoea [Unknown]
  - Dizziness [Unknown]
  - Fatigue [Unknown]
  - Headache [Unknown]
  - Epistaxis [Unknown]
  - Nausea [Recovered/Resolved]
  - Nausea [Unknown]
  - Inappropriate schedule of product administration [Unknown]
  - Device issue [Unknown]
  - Therapy interrupted [Unknown]

NARRATIVE: CASE EVENT DATE: 20220204
